FAERS Safety Report 4593704-1 (Version None)
Quarter: 2005Q1

REPORT INFORMATION
  Report Type: 
  Country: None (occurrence: None)
  Receive Date: 20050224
  Receipt Date: 20041109
  Transmission Date: 20050727
  Serious: No
  Sender: FDA-Public Use
  Company Number: US-BRISTOL-MYERS SQUIBB COMPANY-12765103

PATIENT
  Age: 49 Year
  Sex: Female

DRUGS (2)
  1. EXCEDRIN (MIGRAINE) [Suspect]
     Dosage: DURATION OF THERAPY: APPROX. TEN YEARS
  2. ASPIRIN [Suspect]
     Indication: ROUTINE HEALTH MAINTENANCE

REACTIONS (2)
  - MEDICATION ERROR [None]
  - MEMORY IMPAIRMENT [None]
